FAERS Safety Report 17372658 (Version 1)
Quarter: 2020Q1

REPORT INFORMATION
  Report Type: Spontaneous
  Country: NO (occurrence: NO)
  Receive Date: 20200205
  Receipt Date: 20200205
  Transmission Date: 20200409
  Serious: Yes (Life-Threatening)
  Sender: FDA-Public Use
  Company Number: NO-JNJFOC-20200148602

PATIENT
  Age: 44 Year
  Sex: Male
  Weight: 130 kg

DRUGS (1)
  1. TOPIMAX [TOPIRAMATE] [Suspect]
     Active Substance: TOPIRAMATE
     Indication: MIGRAINE PROPHYLAXIS
     Route: 065

REACTIONS (2)
  - Suicidal ideation [Recovered/Resolved]
  - Decreased interest [Recovered/Resolved]
